FAERS Safety Report 10202564 (Version 2)
Quarter: 2014Q2

REPORT INFORMATION
  Report Type: Spontaneous
  Country: JP (occurrence: JP)
  Receive Date: 20140528
  Receipt Date: 20140606
  Transmission Date: 20141212
  Serious: Yes (Hospitalization)
  Sender: FDA-Public Use
  Company Number: JP-ASTRAZENECA-2014SE36025

PATIENT
  Age: 73 Year
  Sex: Male

DRUGS (4)
  1. SYMBICORT TURBUHALER [Suspect]
     Indication: ASTHMA
     Dosage: 2 DF TWO TIMES A DAY
     Route: 055
  2. SYMBICORT TURBUHALER [Suspect]
     Indication: ASTHMA
     Dosage: 2 DOSAGE FORM, TWO TIMES A DAY, ADDITIONAL THREE INHALATIONS AS REQUIRED
     Route: 055
  3. FLIVAS [Suspect]
     Dosage: DOSE UNKNOWN
     Route: 065
  4. CONCOMITANT MEDICATIONS [Concomitant]

REACTIONS (2)
  - Asthma [Unknown]
  - Dermatitis contact [Unknown]
